FAERS Safety Report 12337820 (Version 1)
Quarter: 2016Q2

REPORT INFORMATION
  Report Type: Other
  Country: US (occurrence: US)
  Receive Date: 20160505
  Receipt Date: 20160505
  Transmission Date: 20160815
  Serious: Yes (Disabling, Other)
  Sender: FDA-Public Use
  Company Number: 2016-000889 WARNER CHILCOTT

PATIENT
  Sex: Male

DRUGS (7)
  1. ALENDRONATE [Suspect]
     Active Substance: ALENDRONATE SODIUM
  2. DIDRONEL [Suspect]
     Active Substance: ETIDRONATE DISODIUM
     Indication: OSTEOPROTEGERIN
     Route: 048
  3. DENOSUMAB [Concomitant]
     Active Substance: DENOSUMAB
  4. RISEDRONATE SODIUM. [Suspect]
     Active Substance: RISEDRONATE SODIUM
     Route: 048
  5. PAMIDRONATE [Suspect]
     Active Substance: PAMIDRONATE DISODIUM
  6. CALCITONIN, HUMAN [Concomitant]
  7. ALFACALCIDOL [Suspect]
     Active Substance: ALFACALCIDOL

REACTIONS (4)
  - Extraskeletal ossification [Unknown]
  - Endotracheal intubation complication [Unknown]
  - External ear disorder [Unknown]
  - Deafness [Unknown]
